FAERS Safety Report 25638903 (Version 2)
Quarter: 2025Q3

REPORT INFORMATION
  Report Type: Spontaneous
  Country: US (occurrence: US)
  Receive Date: 20250804
  Receipt Date: 20250821
  Transmission Date: 20251020
  Serious: No
  Sender: VERTEX
  Company Number: US-VERTEX PHARMACEUTICALS-2025-012464

PATIENT
  Age: 69 Year
  Sex: Male

DRUGS (3)
  1. JOURNAVX [Suspect]
     Active Substance: SUZETRIGINE
     Indication: Pain
     Dosage: 2 TABLETS AS LOADING DOSE, SINGLE
     Route: 048
     Dates: start: 20250718
  2. JOURNAVX [Suspect]
     Active Substance: SUZETRIGINE
     Route: 048
     Dates: start: 20250718
  3. OXYCODONE [Concomitant]
     Active Substance: OXYCODONE
     Indication: Procedural pain

REACTIONS (2)
  - Tremor [Not Recovered/Not Resolved]
  - Paraesthesia [Not Recovered/Not Resolved]

NARRATIVE: CASE EVENT DATE: 20250718
